FAERS Safety Report 8961274 (Version 1)
Quarter: 2012Q4

REPORT INFORMATION
  Report Type: Report from Study
  Country: TH (occurrence: TH)
  Receive Date: 20121212
  Receipt Date: 20121212
  Transmission Date: 20130627
  Serious: Yes (Death, Life-Threatening, Hospitalization)
  Sender: FDA-Public Use
  Company Number: TH-PFIZER INC-2012308250

PATIENT
  Age: 37 Year
  Sex: Female
  Weight: 70.8 kg

DRUGS (12)
  1. METHYLPREDNISOLONE SODIUM SUCCINATE [Suspect]
     Dosage: UNK
     Route: 042
  2. PREDNISOLONE STEAGLATE [Suspect]
     Indication: LUPUS NEPHRITIS
     Dosage: 30 mg, 1x/day
     Route: 048
     Dates: start: 20080903
  3. OCRELIZUMAB [Suspect]
     Indication: LUPUS NEPHRITIS
     Dosage: 1000 mg, UNK
     Route: 042
     Dates: start: 20080529, end: 20080611
  4. OCRELIZUMAB [Suspect]
     Dosage: UNK
     Route: 042
  5. MYCOPHENOLATE MOFETIL [Suspect]
     Indication: LUPUS NEPHRITIS
     Dosage: UNK
     Route: 065
  6. CALCIUM CARBONATE [Concomitant]
     Dosage: 1 g
     Dates: start: 20050328
  7. OMEPRAZOLE [Concomitant]
     Dosage: 20 mg
     Dates: start: 20070214
  8. ENALAPRIL [Concomitant]
     Dosage: 20 mg
     Dates: start: 20070411
  9. AMLODIPINE [Concomitant]
     Dosage: 20 mg
     Dates: start: 20080611
  10. FUROSEMIDE [Concomitant]
     Dosage: 40 mg
     Dates: start: 20080618
  11. MULTIVITAMINS [Concomitant]
     Dosage: UNK
     Dates: start: 20080903
  12. CIPROFLOXACIN [Concomitant]
     Dosage: 1 g
     Dates: start: 20080828

REACTIONS (4)
  - Sepsis [Fatal]
  - Renal failure acute [Fatal]
  - Pneumonia [Fatal]
  - Pneumocystis jiroveci pneumonia [Not Recovered/Not Resolved]
